FAERS Safety Report 14106611 (Version 10)
Quarter: 2019Q3

REPORT INFORMATION
  Report Type: Report from Study
  Country: JP (occurrence: JP)
  Receive Date: 20171019
  Receipt Date: 20190929
  Transmission Date: 20191004
  Serious: Yes (Hospitalization)
  Sender: FDA-Public Use
  Company Number: PHJP2017JP031109

PATIENT
  Age: 16 Year
  Sex: Male
  Weight: 28.2 kg

DRUGS (49)
  1. ILARIS [Suspect]
     Active Substance: CANAKINUMAB
     Dosage: UNK
     Route: 058
     Dates: start: 20170104, end: 20170330
  2. ILARIS [Suspect]
     Active Substance: CANAKINUMAB
     Dosage: 170 MG, 4W
     Route: 058
     Dates: start: 20170426
  3. ILARIS [Suspect]
     Active Substance: CANAKINUMAB
     Dosage: 170 MG, 4W
     Route: 058
     Dates: start: 20180104
  4. ILARIS [Suspect]
     Active Substance: CANAKINUMAB
     Dosage: 170 MG, 4W
     Route: 058
     Dates: start: 20180816
  5. PREDNISOLONE. [Concomitant]
     Active Substance: PREDNISOLONE
     Indication: OSTEOPOROSIS
     Dosage: 3 MG, UNK
     Route: 048
  6. PREDNISOLONE. [Concomitant]
     Active Substance: PREDNISOLONE
     Dosage: 10 MG, UNK
     Route: 048
     Dates: start: 20181215, end: 20181216
  7. ILARIS [Suspect]
     Active Substance: CANAKINUMAB
     Dosage: 170 MG, 4W
     Route: 058
     Dates: start: 20170331
  8. ILARIS [Suspect]
     Active Substance: CANAKINUMAB
     Dosage: 170 MG, 4W
     Route: 058
     Dates: start: 20170816
  9. ILARIS [Suspect]
     Active Substance: CANAKINUMAB
     Dosage: 191 MG, 4W
     Route: 058
     Dates: start: 20181010
  10. PREDNISOLONE. [Concomitant]
     Active Substance: PREDNISOLONE
     Dosage: 5 MG, UNK
     Route: 048
     Dates: start: 20181106
  11. PREDNISOLONE. [Concomitant]
     Active Substance: PREDNISOLONE
     Dosage: 5 MG, UNK
     Route: 048
  12. ILARIS [Suspect]
     Active Substance: CANAKINUMAB
     Indication: HYPER IGD SYNDROME
     Dosage: UNK
     Route: 058
     Dates: start: 201205
  13. ILARIS [Suspect]
     Active Substance: CANAKINUMAB
     Dosage: 170 MG, 4W
     Route: 058
     Dates: start: 20170913
  14. ILARIS [Suspect]
     Active Substance: CANAKINUMAB
     Dosage: 170 MG, 4W
     Route: 058
     Dates: start: 20171108
  15. ILARIS [Suspect]
     Active Substance: CANAKINUMAB
     Dosage: 170 MG, 4W
     Route: 058
     Dates: start: 20180523
  16. ILARIS [Suspect]
     Active Substance: CANAKINUMAB
     Dosage: 191 MG, 4W
     Route: 058
     Dates: start: 20190104
  17. ILARIS [Suspect]
     Active Substance: CANAKINUMAB
     Dosage: 170 MG, 4W
     Route: 058
     Dates: start: 20171204
  18. ILARIS [Suspect]
     Active Substance: CANAKINUMAB
     Dosage: 170 MG, 4W
     Route: 058
     Dates: start: 20180718
  19. ILARIS [Suspect]
     Active Substance: CANAKINUMAB
     Dosage: 191 MG, 4W
     Route: 058
     Dates: start: 20190327
  20. ACTEMRA [Concomitant]
     Active Substance: TOCILIZUMAB
     Indication: PRODUCT USED FOR UNKNOWN INDICATION
     Dosage: UNK
     Route: 065
  21. PREDNISOLONE. [Concomitant]
     Active Substance: PREDNISOLONE
     Indication: DIARRHOEA
     Dosage: 3 MG, UNK
     Route: 065
  22. INFLUENZA HA VACCINE [Concomitant]
     Active Substance: INFLUENZA VIRUS VACCINE
     Indication: PRODUCT USED FOR UNKNOWN INDICATION
     Dosage: UNK
     Route: 042
     Dates: start: 20190111
  23. ILARIS [Suspect]
     Active Substance: CANAKINUMAB
     Dosage: 170 MG, 4W
     Route: 058
     Dates: start: 20170524
  24. ILARIS [Suspect]
     Active Substance: CANAKINUMAB
     Dosage: 170 MG, 4W
     Route: 058
     Dates: start: 20180425
  25. ILARIS [Suspect]
     Active Substance: CANAKINUMAB
     Dosage: 191 MG, 4W
     Route: 058
     Dates: start: 20190130
  26. PREDNISOLONE. [Concomitant]
     Active Substance: PREDNISOLONE
     Dosage: 3 MG, UNK
     Route: 065
  27. PREDNISOLONE. [Concomitant]
     Active Substance: PREDNISOLONE
     Dosage: 10 MG, UNK
     Route: 065
     Dates: start: 20181106, end: 20181108
  28. PREDNISOLONE. [Concomitant]
     Active Substance: PREDNISOLONE
     Dosage: 3 MG, UNK
     Route: 048
     Dates: start: 20181112
  29. PREDNISOLONE. [Concomitant]
     Active Substance: PREDNISOLONE
     Dosage: 3 MG, UNK
     Route: 048
     Dates: start: 20181223
  30. ILARIS [Suspect]
     Active Substance: CANAKINUMAB
     Dosage: 170 MG, 4W
     Route: 058
     Dates: start: 20180328
  31. PREDNISOLONE. [Concomitant]
     Active Substance: PREDNISOLONE
     Dosage: 5 MG, UNK
     Route: 065
     Dates: start: 20180313, end: 20180317
  32. PREDNISOLONE. [Concomitant]
     Active Substance: PREDNISOLONE
     Dosage: 3 MG, UNK
     Route: 065
  33. PREDNISOLONE. [Concomitant]
     Active Substance: PREDNISOLONE
     Dosage: 8 MG, UNK
     Route: 048
     Dates: start: 20181214
  34. ILARIS [Suspect]
     Active Substance: CANAKINUMAB
     Dosage: 170 MG, 4W
     Route: 058
     Dates: start: 20170619
  35. ILARIS [Suspect]
     Active Substance: CANAKINUMAB
     Dosage: 170 MG, 4W
     Route: 058
     Dates: start: 20170719
  36. ILARIS [Suspect]
     Active Substance: CANAKINUMAB
     Dosage: 170 MG, 4W
     Route: 058
     Dates: start: 20180620
  37. ILARIS [Suspect]
     Active Substance: CANAKINUMAB
     Dosage: 171 MG, 4W
     Route: 058
     Dates: start: 20180910
  38. ILARIS [Suspect]
     Active Substance: CANAKINUMAB
     Dosage: 191 MG, 4W
     Route: 058
     Dates: start: 20181107
  39. ILARIS [Suspect]
     Active Substance: CANAKINUMAB
     Dosage: 191 MG, 4W
     Route: 058
     Dates: start: 20181203
  40. ILARIS [Suspect]
     Active Substance: CANAKINUMAB
     Dosage: 191 MG, 4W
     Route: 058
     Dates: start: 20190227
  41. PREDNISOLONE. [Concomitant]
     Active Substance: PREDNISOLONE
     Indication: PHARYNGITIS
     Dosage: 5 MG, UNK
     Route: 065
     Dates: start: 20170429, end: 20171025
  42. PREDNISOLONE. [Concomitant]
     Active Substance: PREDNISOLONE
     Dosage: 5 MG, UNK
     Route: 048
     Dates: start: 20181219, end: 20181222
  43. BAKTAR [Concomitant]
     Active Substance: SULFAMETHOXAZOLE\TRIMETHOPRIM
     Indication: PRODUCT USED FOR UNKNOWN INDICATION
     Dosage: 1 G, UNK
     Route: 048
  44. ILARIS [Suspect]
     Active Substance: CANAKINUMAB
     Dosage: 170 MG, 4W
     Route: 058
     Dates: start: 20171011
  45. ILARIS [Suspect]
     Active Substance: CANAKINUMAB
     Dosage: 170 MG, 4W
     Route: 058
     Dates: start: 20180131
  46. ILARIS [Suspect]
     Active Substance: CANAKINUMAB
     Dosage: 170 MG, 4W
     Route: 058
     Dates: start: 20180228
  47. PREDNISOLONE. [Concomitant]
     Active Substance: PREDNISOLONE
     Indication: HYPER IGD SYNDROME
     Dosage: 5 MG, UNK
     Route: 065
     Dates: start: 20171201
  48. PREDNISOLONE. [Concomitant]
     Active Substance: PREDNISOLONE
     Dosage: 10 MG, UNK
     Route: 065
     Dates: start: 20180310, end: 20180312
  49. GLAKAY [Concomitant]
     Active Substance: MENATETRENONE
     Indication: OSTEOPOROSIS
     Dosage: 1 DF, UNK
     Route: 048

REACTIONS (32)
  - Pyrexia [Recovered/Resolved]
  - Fatigue [Unknown]
  - Diarrhoea [Recovered/Resolved]
  - Stomatitis [Recovering/Resolving]
  - Pharyngitis [Recovered/Resolved]
  - Nasal congestion [Unknown]
  - Productive cough [Unknown]
  - Back pain [Recovered/Resolved]
  - Abdominal pain [Recovered/Resolved]
  - Pharyngitis [Recovered/Resolved]
  - Hyper IgD syndrome [Recovered/Resolved]
  - Disease progression [Recovered/Resolved]
  - Nasal congestion [Recovered/Resolved]
  - Abdominal pain [Recovering/Resolving]
  - Headache [Recovering/Resolving]
  - Oropharyngeal pain [Recovered/Resolved]
  - Nasopharyngitis [Recovered/Resolved]
  - Pharyngitis [Recovered/Resolved]
  - Cough [Unknown]
  - Hyper IgD syndrome [Recovered/Resolved]
  - Pharyngitis [Recovered/Resolved]
  - Headache [Recovered/Resolved]
  - Diarrhoea [Recovered/Resolved]
  - Headache [Recovered/Resolved]
  - Rhinorrhoea [Unknown]
  - Oropharyngeal pain [Recovered/Resolved]
  - Disease progression [Recovered/Resolved]
  - Conjunctivitis [Recovered/Resolved]
  - Pharyngeal erythema [Unknown]
  - Dysphagia [Unknown]
  - Diarrhoea [Recovering/Resolving]
  - Conjunctival hyperaemia [Recovered/Resolved]

NARRATIVE: CASE EVENT DATE: 20170425
